FAERS Safety Report 18534604 (Version 2)
Quarter: 2020Q4

REPORT INFORMATION
  Report Type: Report from Study
  Country: None (occurrence: US)
  Receive Date: 20201123
  Receipt Date: 20201216
  Transmission Date: 20210114
  Serious: Yes (Hospitalization, Other)
  Sender: FDA-Public Use
  Company Number: US-ABBVIE-20K-163-3534279-00

PATIENT
  Age: 50 Year
  Sex: Female
  Weight: 113 kg

DRUGS (3)
  1. HUMIRA [Suspect]
     Active Substance: ADALIMUMAB
     Route: 058
     Dates: start: 202010
  2. SULFASALAZINE. [Concomitant]
     Active Substance: SULFASALAZINE
     Indication: RHEUMATOID ARTHRITIS
  3. HUMIRA [Suspect]
     Active Substance: ADALIMUMAB
     Indication: RHEUMATOID ARTHRITIS
     Route: 058
     Dates: start: 2010, end: 202006

REACTIONS (19)
  - Sepsis [Recovered/Resolved]
  - Muscle atrophy [Recovering/Resolving]
  - Herpes zoster [Recovered/Resolved]
  - Tooth infection [Recovered/Resolved]
  - Hallucination [Unknown]
  - Anosmia [Not Recovered/Not Resolved]
  - Immunodeficiency [Not Recovered/Not Resolved]
  - Pneumonia bacterial [Recovered/Resolved]
  - COVID-19 [Not Recovered/Not Resolved]
  - Tooth extraction [Unknown]
  - Balance disorder [Recovering/Resolving]
  - Feeding disorder [Not Recovered/Not Resolved]
  - Pneumonia [Recovered/Resolved]
  - Contraindicated product administered [Unknown]
  - Ageusia [Not Recovered/Not Resolved]
  - Gingival abscess [Recovered/Resolved]
  - Medical induction of coma [Recovered/Resolved]
  - Feeling abnormal [Not Recovered/Not Resolved]
  - Bacterial infection [Recovered/Resolved]

NARRATIVE: CASE EVENT DATE: 202005
